FAERS Safety Report 11805561 (Version 1)
Quarter: 2015Q4

REPORT INFORMATION
  Report Type: Spontaneous
  Country: ES (occurrence: None)
  Receive Date: 20151204
  Receipt Date: 20151204
  Transmission Date: 20160305
  Serious: No
  Sender: FDA-Public Use
  Company Number: None

PATIENT
  Sex: Female

DRUGS (2)
  1. TENORETIC [Concomitant]
     Active Substance: ATENOLOL\CHLORTHALIDONE
  2. TENORETIC [Suspect]
     Active Substance: ATENOLOL\CHLORTHALIDONE
     Indication: BLOOD PRESSURE INCREASED
     Dosage: TAKEN BY MOUTH  1/2 (50MG)
     Route: 048

REACTIONS (3)
  - Quality of life decreased [None]
  - Product label issue [None]
  - Anal fissure [None]
